FAERS Safety Report 15859047 (Version 2)
Quarter: 2019Q1

REPORT INFORMATION
  Report Type: Spontaneous
  Country: US (occurrence: US)
  Receive Date: 20190123
  Receipt Date: 20190301
  Transmission Date: 20190417
  Serious: No
  Sender: FDA-Public Use
  Company Number: US-SA-2019SA016266

PATIENT
  Age: 73 Year
  Sex: Male

DRUGS (4)
  1. ZANTAC MAXIMUM STRENGTH 150 COOL MINT [Suspect]
     Active Substance: RANITIDINE HYDROCHLORIDE
  2. TUMS [Suspect]
     Active Substance: CALCIUM CARBONATE
  3. OMEPRAZOLE. [Suspect]
     Active Substance: OMEPRAZOLE
     Dosage: 1 DF, QD
  4. ZANTAC [Suspect]
     Active Substance: RANITIDINE HYDROCHLORIDE
     Indication: DYSPEPSIA
     Dosage: 150 MG, QD
     Route: 065

REACTIONS (5)
  - Intentional product use issue [Unknown]
  - Drug ineffective [Unknown]
  - Dyspepsia [Unknown]
  - Drug effect delayed [Unknown]
  - Product taste abnormal [Unknown]
